FAERS Safety Report 7927070-8 (Version None)
Quarter: 2011Q4

REPORT INFORMATION
  Report Type: 
  Country: None (occurrence: None)
  Receive Date: 20111118
  Receipt Date: 20111111
  Transmission Date: 20120403
  Serious: Yes (Other)
  Sender: FDA-Public Use
  Company Number: JP-JNJFOC-20111102466

PATIENT
  Age: 37 Year
  Sex: Female

DRUGS (5)
  1. FENTANYL-100 [Suspect]
     Indication: PROCEDURAL PAIN
     Route: 062
  2. GABAPENTIN [Concomitant]
     Indication: NEURALGIA
     Route: 048
  3. AMOXAPINE [Interacting]
     Indication: NEURALGIA
     Route: 048
  4. FENTANYL CITRATE [Concomitant]
     Route: 042
  5. FENTANYL-100 [Suspect]
     Indication: CANCER PAIN
     Route: 062

REACTIONS (2)
  - DRUG INTERACTION [None]
  - SEROTONIN SYNDROME [None]
